FAERS Safety Report 6710215-5 (Version None)
Quarter: 2010Q2

REPORT INFORMATION
  Report Type: 
  Country: None (occurrence: None)
  Receive Date: 20100504
  Receipt Date: 20100422
  Transmission Date: 20101027
  Serious: Yes (Hospitalization)
  Sender: FDA-Public Use
  Company Number: FR-PFIZER INC-2010055257

PATIENT
  Age: 89 Year
  Sex: Female

DRUGS (5)
  1. ALPRAZOLAM [Suspect]
     Dosage: UNK
     Route: 048
     Dates: end: 20100325
  2. OLMESARTAN MEDOXOMIL [Suspect]
     Dosage: UNK
     Dates: end: 20100325
  3. ALISKIREN [Suspect]
     Dosage: UNK
     Route: 048
     Dates: end: 20100325
  4. IXPRIM [Suspect]
     Dosage: UNK
     Route: 048
     Dates: end: 20100325
  5. VASTAREL [Concomitant]
     Route: 048

REACTIONS (1)
  - FALL [None]
